FAERS Safety Report 6807288-8 (Version None)
Quarter: 2010Q2

REPORT INFORMATION
  Report Type: 
  Country: None (occurrence: None)
  Receive Date: 20100629
  Receipt Date: 20080910
  Transmission Date: 20101027
  Serious: No
  Sender: FDA-Public Use
  Company Number: US-PFIZER INC-2008065278

PATIENT
  Sex: Male
  Weight: 92.272 kg

DRUGS (6)
  1. VIAGRA [Suspect]
     Indication: ERECTILE DYSFUNCTION
     Route: 048
     Dates: start: 19980101
  2. PRILOSEC [Concomitant]
     Indication: BARRETT'S OESOPHAGUS
  3. LISINOPRIL [Concomitant]
     Indication: HYPERTENSION
  4. IMIPRAMINE [Concomitant]
  5. ATIVAN [Concomitant]
  6. NEXIUM [Concomitant]

REACTIONS (7)
  - CHROMATOPSIA [None]
  - DRUG INEFFECTIVE [None]
  - DRUG TOLERANCE [None]
  - INCORRECT DOSE ADMINISTERED [None]
  - MIGRAINE [None]
  - VISION BLURRED [None]
  - WRONG TECHNIQUE IN DRUG USAGE PROCESS [None]
